FAERS Safety Report 9177447 (Version 1)
Quarter: 2013Q1

REPORT INFORMATION
  Report Type: Spontaneous
  Country: GB (occurrence: None)
  Receive Date: 20130319
  Receipt Date: 20130319
  Transmission Date: 20140127
  Serious: Yes (Other)
  Sender: FDA-Public Use
  Company Number: 2013/069

PATIENT
  Sex: Male
  Weight: 88 kg

DRUGS (2)
  1. TERBINAFINE (NO PREF. NAME) 250 MG [Suspect]
     Indication: CATARACT OPERATION
     Route: 048
     Dates: start: 20121220, end: 20130114
  2. CETIRIZINE (NO PREF. NAME) [Concomitant]

REACTIONS (2)
  - Anger [None]
  - Violence-related symptom [None]
